FAERS Safety Report 4379878-6 (Version None)
Quarter: 2004Q2

REPORT INFORMATION
  Report Type: 
  Country: None (occurrence: None)
  Receive Date: 20040614
  Receipt Date: 20040601
  Transmission Date: 20050107
  Serious: Yes (Hospitalization)
  Sender: FDA-Public Use
  Company Number: FR-JNJFOC-20040600687

PATIENT
  Age: 63 Year
  Sex: Female

DRUGS (7)
  1. IXPRIM (TRAMADOL/APAP) TABLETS [Suspect]
     Indication: HEADACHE
     Dosage: ORAL
     Route: 048
     Dates: start: 20030711, end: 20030716
  2. CORTANCYL (PREDNISONE) UNKNOWN [Suspect]
     Indication: DRUG USE FOR UNKNOWN INDICATION
     Dosage: 9 MG, 1 IN 1 DAY, ORAL
     Route: 048
     Dates: start: 20030215
  3. AMITRIPTYLINE HYDROCHLORIDE [Suspect]
     Indication: DRUG USE FOR UNKNOWN INDICATION
     Dosage: ORAL
  4. AUGMENTIN [Suspect]
     Indication: LYMPHANGITIS
     Dosage: 1 G, 1 IN 1 DAY, ORAL
     Route: 048
     Dates: start: 20030709, end: 20030716
  5. AUGMENTIN [Suspect]
     Indication: SKIN INFECTION
     Dosage: 1 G, 1 IN 1 DAY, ORAL
     Route: 048
     Dates: start: 20030709, end: 20030716
  6. CLONAZEPAM [Concomitant]
  7. FUCIDINE (UNKNOWN) FUSIDATE SODIUM [Concomitant]

REACTIONS (4)
  - DRUG INEFFECTIVE [None]
  - DRUG INTERACTION [None]
  - HEADACHE [None]
  - NEUTROPENIA [None]
